FAERS Safety Report 16380429 (Version 2)
Quarter: 2019Q2

REPORT INFORMATION
  Report Type: Report from Study
  Country: None (occurrence: RO)
  Receive Date: 20190601
  Receipt Date: 20190608
  Transmission Date: 20190711
  Serious: Yes (Life-Threatening, Hospitalization, Other)
  Sender: FDA-Public Use
  Company Number: RO-ABBVIE-19K-135-2803246-00

PATIENT
  Age: 66 Year
  Sex: Male
  Weight: 86 kg

DRUGS (4)
  1. INDAPAMIDE. [Concomitant]
     Active Substance: INDAPAMIDE
     Indication: HYPERTENSION
     Dosage: BEFORE ABBVIE THERAPY
     Route: 048
  2. LISINOPRIL. [Concomitant]
     Active Substance: LISINOPRIL
     Indication: HYPERTENSION
     Dosage: BEFORE ABBVIE THERAPY
     Route: 048
  3. HUMIRA [Suspect]
     Active Substance: ADALIMUMAB
     Indication: PSORIASIS
     Route: 058
     Dates: start: 20100810, end: 20190312
  4. DETRALEX [Concomitant]
     Active Substance: DIOSMIN\HESPERIDIN
     Indication: HYPERTENSION
     Dosage: BEFORE ABBVIE THERAPY
     Route: 048

REACTIONS (2)
  - Adenocarcinoma of colon [Unknown]
  - Gastrointestinal haemorrhage [Unknown]

NARRATIVE: CASE EVENT DATE: 201903
